FAERS Safety Report 10362468 (Version 1)
Quarter: 2014Q3

REPORT INFORMATION
  Report Type: Spontaneous
  Country: US (occurrence: None)
  Receive Date: 20140804
  Receipt Date: 20140804
  Transmission Date: 20150326
  Serious: Yes (Other)
  Sender: FDA-Public Use
  Company Number: None

PATIENT
  Age: 71 Year
  Sex: Male

DRUGS (1)
  1. HUMIRA [Suspect]
     Active Substance: ADALIMUMAB
     Dosage: 40 MG ?EVERY 2 WEEKS?SUBCUTANEOUSLY
     Route: 058
     Dates: start: 20140417, end: 20140708

REACTIONS (3)
  - Diverticulitis [None]
  - Colonic abscess [None]
  - Pain [None]
